FAERS Safety Report 9899718 (Version 3)
Quarter: 2015Q3

REPORT INFORMATION
  Report Type: Spontaneous
  Country: US (occurrence: US)
  Receive Date: 20140214
  Receipt Date: 20150810
  Transmission Date: 20151125
  Serious: No
  Sender: FDA-Public Use
  Company Number: US-GILEAD-2011-0043155

PATIENT
  Age: 71 Year
  Sex: Female

DRUGS (7)
  1. LETAIRIS [Suspect]
     Active Substance: AMBRISENTAN
     Indication: PULMONARY HYPERTENSION
     Dosage: 10 MG, UNK
     Route: 048
     Dates: start: 20080709
  2. GLIPIZIDE. [Concomitant]
     Active Substance: GLIPIZIDE
  3. MEVACOR [Suspect]
     Active Substance: LOVASTATIN
     Dosage: UNK
  4. REVATIO [Concomitant]
     Active Substance: SILDENAFIL CITRATE
  5. COZAAR [Concomitant]
     Active Substance: LOSARTAN POTASSIUM
  6. PRADAXA [Concomitant]
     Active Substance: DABIGATRAN ETEXILATE MESYLATE
     Indication: ATRIAL FLUTTER
     Dosage: UNK
     Dates: start: 20110810, end: 20111011
  7. LETAIRIS [Suspect]
     Active Substance: AMBRISENTAN
     Indication: SLEEP APNOEA SYNDROME
     Dosage: 5 MG, UNK
     Route: 048

REACTIONS (1)
  - Transaminases increased [Recovered/Resolved]
